FAERS Safety Report 5042285-7 (Version None)
Quarter: 2006Q2

REPORT INFORMATION
  Report Type: 
  Country: None (occurrence: None)
  Receive Date: 20060627
  Receipt Date: 20060608
  Transmission Date: 20061013
  Serious: Yes (Hospitalization)
  Sender: FDA-Public Use
  Company Number: JP200605004640

PATIENT
  Age: 58 Year
  Sex: Male
  Weight: 78 kg

DRUGS (8)
  1. LISPRO(LISPRO 50LIS50NPL) CARTRIDGE [Suspect]
     Indication: DIABETES MELLITUS NON-INSULIN-DEPENDENT
     Dosage: SEE IMAGE
     Dates: start: 20050602, end: 20051202
  2. LISPRO(LISPRO 50LIS50NPL) CARTRIDGE [Suspect]
     Indication: DIABETES MELLITUS NON-INSULIN-DEPENDENT
     Dosage: SEE IMAGE
     Dates: start: 20051203, end: 20060125
  3. LISPRO(LISPRO 50LIS50NPL) CARTRIDGE [Suspect]
     Indication: DIABETES MELLITUS NON-INSULIN-DEPENDENT
     Dosage: SEE IMAGE
     Dates: start: 20051203, end: 20060125
  4. LISPRO(LISPRO 50LIS50NPL) CARTRIDGE [Suspect]
     Indication: DIABETES MELLITUS NON-INSULIN-DEPENDENT
     Dosage: SEE IMAGE
     Dates: start: 20060126, end: 20060310
  5. LISPRO(LISPRO 50LIS50NPL) CARTRIDGE [Suspect]
     Indication: DIABETES MELLITUS NON-INSULIN-DEPENDENT
     Dosage: SEE IMAGE
     Dates: start: 20060126, end: 20060310
  6. LISPRO(LISPRO 50LIS50NPL) CARTRIDGE [Suspect]
     Indication: DIABETES MELLITUS NON-INSULIN-DEPENDENT
     Dosage: SEE IMAGE
     Dates: start: 20060126, end: 20060310
  7. URSO (URSODEOXYCHOLIC ACID) TABLET [Concomitant]
  8. BLOPRESS /GFR/ (CANDESARTAN CILEXETIL) TABLET [Concomitant]

REACTIONS (1)
  - PUTAMEN HAEMORRHAGE [None]
